FAERS Safety Report 17138790 (Version 1)
Quarter: 2019Q4

REPORT INFORMATION
  Report Type: Spontaneous
  Country: US (occurrence: US)
  Receive Date: 20191210
  Receipt Date: 20191210
  Transmission Date: 20200122
  Serious: Yes (Hospitalization, Other)
  Sender: FDA-Public Use
  Company Number: None

PATIENT
  Age: 77 Year
  Sex: Male
  Weight: 74.4 kg

DRUGS (1)
  1. FERRIC CARBOXYMALTOSE [Suspect]
     Active Substance: FERRIC CARBOXYMALTOSE
     Dosage: ?          OTHER FREQUENCY:WEEKLY X 2 DOSES;?
     Route: 040
     Dates: start: 20190821, end: 20190829

REACTIONS (2)
  - Blood phosphorus decreased [None]
  - Cerebrovascular accident [None]

NARRATIVE: CASE EVENT DATE: 20190829
